FAERS Safety Report 17945927 (Version 11)
Quarter: 2020Q4

REPORT INFORMATION
  Report Type: Spontaneous
  Country: US (occurrence: US)
  Receive Date: 20200626
  Receipt Date: 20201027
  Transmission Date: 20210113
  Serious: Yes (Other)
  Sender: FDA-Public Use
  Company Number: US-BIOGEN-2020BI00888558

PATIENT
  Age: 70 Year
  Sex: Female

DRUGS (9)
  1. VUMERITY [Suspect]
     Active Substance: DIROXIMEL FUMARATE
     Indication: MULTIPLE SCLEROSIS
     Route: 048
     Dates: start: 20200612
  2. VUMERITY [Suspect]
     Active Substance: DIROXIMEL FUMARATE
     Route: 048
     Dates: start: 20200613, end: 20200620
  3. VUMERITY [Suspect]
     Active Substance: DIROXIMEL FUMARATE
     Route: 065
  4. TYLENOL [Concomitant]
     Active Substance: ACETAMINOPHEN
     Indication: PRODUCT USED FOR UNKNOWN INDICATION
     Route: 065
  5. VUMERITY [Suspect]
     Active Substance: DIROXIMEL FUMARATE
     Route: 048
     Dates: start: 20200613, end: 20200620
  6. ASPIRIN. [Concomitant]
     Active Substance: ASPIRIN
     Indication: PRODUCT USED FOR UNKNOWN INDICATION
     Route: 065
  7. VUMERITY [Suspect]
     Active Substance: DIROXIMEL FUMARATE
     Route: 065
     Dates: start: 20200620
  8. AMLODIPINE BESYLATE. [Concomitant]
     Active Substance: AMLODIPINE BESYLATE
     Indication: HYPERTENSION
     Route: 065
     Dates: start: 202007
  9. VUMERITY [Suspect]
     Active Substance: DIROXIMEL FUMARATE
     Route: 048
     Dates: start: 20200621

REACTIONS (23)
  - Hypoaesthesia oral [Recovered/Resolved]
  - Blood glucose abnormal [Unknown]
  - Multiple sclerosis [Unknown]
  - Faeces discoloured [Unknown]
  - Blood glucose increased [Recovered/Resolved]
  - Ear pruritus [Recovered/Resolved]
  - Headache [Not Recovered/Not Resolved]
  - Sinus congestion [Recovered/Resolved]
  - Candida infection [Recovered/Resolved]
  - Thyroid mass [Not Recovered/Not Resolved]
  - Paraesthesia [Recovered/Resolved]
  - Rhinorrhoea [Unknown]
  - Burning sensation [Recovered/Resolved]
  - Upper-airway cough syndrome [Unknown]
  - Hypoaesthesia [Unknown]
  - Muscle fatigue [Unknown]
  - Vomiting [Recovered/Resolved]
  - Flushing [Recovered/Resolved]
  - Dyspepsia [Recovered/Resolved]
  - Sinus disorder [Unknown]
  - Abdominal distension [Recovered/Resolved]
  - Nausea [Recovered/Resolved]
  - Neuropathy peripheral [Not Recovered/Not Resolved]

NARRATIVE: CASE EVENT DATE: 202006
